FAERS Safety Report 17868437 (Version 1)
Quarter: 2020Q2

REPORT INFORMATION
  Report Type: Report from Study
  Country: US (occurrence: US)
  Receive Date: 20200606
  Receipt Date: 20200606
  Transmission Date: 20200714
  Serious: Yes (Other)
  Sender: FDA-Public Use
  Company Number: US-ACCORD-183769

PATIENT
  Age: 76 Year
  Sex: Male

DRUGS (1)
  1. CAPECITABINE. [Suspect]
     Active Substance: CAPECITABINE
     Indication: GASTROOESOPHAGEAL CANCER RECURRENT

REACTIONS (5)
  - Oesophagitis [Unknown]
  - Dermatitis [Unknown]
  - Off label use [Unknown]
  - Fatigue [Unknown]
  - Dysphagia [Unknown]
